FAERS Safety Report 23290176 (Version 5)
Quarter: 2024Q2

REPORT INFORMATION
  Report Type: Spontaneous
  Country: JP (occurrence: JP)
  Receive Date: 20231213
  Receipt Date: 20240513
  Transmission Date: 20240715
  Serious: Yes (Other)
  Sender: FDA-Public Use
  Company Number: JP-BoehringerIngelheim-2023-BI-276854

PATIENT
  Age: 74 Year
  Sex: Female

DRUGS (3)
  1. OFEV [Suspect]
     Active Substance: NINTEDANIB
     Indication: Idiopathic pulmonary fibrosis
     Route: 065
  2. OFEV [Suspect]
     Active Substance: NINTEDANIB
     Route: 065
  3. OFEV [Suspect]
     Active Substance: NINTEDANIB
     Route: 065

REACTIONS (3)
  - Enterocolitis [Recovered/Resolved]
  - Diarrhoea [Recovered/Resolved]
  - Hepatic function abnormal [Recovered/Resolved]
